FAERS Safety Report 8437287-4 (Version None)
Quarter: 2012Q2

REPORT INFORMATION
  Report Type: 
  Country: None (occurrence: None)
  Receive Date: 20120614
  Receipt Date: 20120305
  Transmission Date: 20120825
  Serious: No
  Sender: FDA-Public Use
  Company Number: US-AMGEN-USASP2012006506

PATIENT
  Age: 69 Year
  Sex: Female

DRUGS (8)
  1. NEXIUM [Concomitant]
  2. XANAX [Concomitant]
  3. LIDODERM [Concomitant]
     Route: 061
  4. PROLIA [Suspect]
     Indication: OSTEOPOROSIS POSTMENOPAUSAL
     Dosage: UNK UNK, Q6MO
     Dates: start: 20120130
  5. LEVOTHYROXINE SODIUM [Concomitant]
  6. TOPROL-XL [Concomitant]
  7. AMBIEN [Concomitant]
     Indication: INSOMNIA
  8. TRAMADOL HCL [Concomitant]

REACTIONS (10)
  - INJECTION SITE PAIN [None]
  - DIARRHOEA [None]
  - PAIN IN EXTREMITY [None]
  - INSOMNIA [None]
  - BACK PAIN [None]
  - HEADACHE [None]
  - PAIN IN JAW [None]
  - BONE PAIN [None]
  - MUSCULOSKELETAL PAIN [None]
  - MALAISE [None]
